FAERS Safety Report 5325147-7 (Version None)
Quarter: 2007Q2

REPORT INFORMATION
  Report Type: 
  Country: None (occurrence: None)
  Receive Date: 20070515
  Receipt Date: 20070509
  Transmission Date: 20071010
  Serious: Yes (Hospitalization)
  Sender: FDA-Public Use
  Company Number: JP-AVENTIS-200612021JP

PATIENT
  Age: 56 Year
  Sex: Female
  Weight: 47 kg

DRUGS (14)
  1. ARAVA [Suspect]
     Indication: RHEUMATOID ARTHRITIS
     Route: 048
     Dates: start: 20060412, end: 20060629
  2. RHEUMATREX                         /00113801/ [Concomitant]
     Indication: RHEUMATOID ARTHRITIS
     Route: 048
     Dates: start: 20050729, end: 20050905
  3. RHEUMATREX                         /00113801/ [Concomitant]
     Route: 048
     Dates: start: 20050906, end: 20051003
  4. RHEUMATREX                         /00113801/ [Concomitant]
     Route: 048
     Dates: start: 20051004, end: 20060409
  5. FOLIAMIN [Concomitant]
     Route: 048
     Dates: start: 20050729, end: 20060409
  6. PREDNISOLONE [Concomitant]
     Indication: ARTHRITIS
     Route: 048
     Dates: start: 20050729, end: 20060622
  7. SALIGREN [Concomitant]
     Indication: SJOGREN'S SYNDROME
     Route: 048
     Dates: start: 20050729
  8. TAKEPRON [Concomitant]
     Route: 048
     Dates: start: 20050729
  9. SELBEX [Concomitant]
     Route: 048
     Dates: start: 20050729
  10. LOBU [Concomitant]
     Indication: ARTHRITIS
     Route: 048
     Dates: start: 20050729
  11. REMICADE [Concomitant]
     Indication: RHEUMATOID ARTHRITIS
     Route: 042
     Dates: start: 20051205, end: 20051205
  12. REMICADE [Concomitant]
     Route: 042
     Dates: start: 20051219, end: 20051219
  13. REMICADE [Concomitant]
     Route: 042
     Dates: start: 20060117, end: 20060117
  14. REMICADE [Concomitant]
     Route: 042
     Dates: start: 20060313, end: 20060313

REACTIONS (5)
  - MONONEUROPATHY MULTIPLEX [None]
  - PURPURA [None]
  - RASH [None]
  - ULCER [None]
  - VASCULITIS NECROTISING [None]
